FAERS Safety Report 22619066 (Version 13)
Quarter: 2024Q3

REPORT INFORMATION
  Report Type: Report from Study
  Country: CO (occurrence: CO)
  Receive Date: 20230620
  Receipt Date: 20240925
  Transmission Date: 20241017
  Serious: Yes (Other)
  Sender: TAKEDA
  Company Number: CO-TAKEDA-2023TUS024671

PATIENT
  Age: 54 Year
  Sex: Female
  Weight: 63 kg

DRUGS (2)
  1. VEDOLIZUMAB [Suspect]
     Active Substance: VEDOLIZUMAB
     Indication: Colitis ulcerative
     Dosage: 300 MILLIGRAM
     Route: 042
     Dates: start: 20181017
  2. MESALAMINE [Suspect]
     Active Substance: MESALAMINE
     Indication: Product used for unknown indication
     Dosage: UNK
     Route: 065

REACTIONS (24)
  - Cholelithiasis [Not Recovered/Not Resolved]
  - Colitis ulcerative [Unknown]
  - Intestinal haemorrhage [Unknown]
  - Drug ineffective [Unknown]
  - Gastritis [Not Recovered/Not Resolved]
  - Weight increased [Unknown]
  - Psoriasis [Unknown]
  - White blood cell count decreased [Unknown]
  - Pain [Unknown]
  - Proctalgia [Unknown]
  - Weight decreased [Unknown]
  - Treatment noncompliance [Unknown]
  - Abdominal pain upper [Unknown]
  - Faeces soft [Unknown]
  - Abnormal faeces [Unknown]
  - Neutrophil count decreased [Unknown]
  - Loss of personal independence in daily activities [Unknown]
  - Haemorrhage [Unknown]
  - Diarrhoea [Unknown]
  - Asthenia [Unknown]
  - Abdominal pain [Unknown]
  - Headache [Not Recovered/Not Resolved]
  - Arthralgia [Unknown]
  - Influenza [Not Recovered/Not Resolved]

NARRATIVE: CASE EVENT DATE: 20230627
